FAERS Safety Report 9135379 (Version 1)
Quarter: 2013Q1

REPORT INFORMATION
  Report Type: Spontaneous
  Country: DK (occurrence: FR)
  Receive Date: 20130304
  Receipt Date: 20130304
  Transmission Date: 20140127
  Serious: Yes (Disabling)
  Sender: FDA-Public Use
  Company Number: FR-FRI-1000043052

PATIENT
  Age: 34 Year
  Sex: Male
  Weight: 80 kg

DRUGS (3)
  1. CITALOPRAM [Suspect]
     Indication: DEPRESSION
     Dosage: 20 MG
     Route: 048
     Dates: start: 2009, end: 20120423
  2. CITALOPRAM [Interacting]
     Dosage: 40 MG
     Route: 048
     Dates: start: 20120424
  3. AUGMENTIN [Interacting]
     Indication: TOOTH INFECTION
     Dosage: 3 GRAM
     Dates: start: 20120410, end: 20120424

REACTIONS (3)
  - Disease recurrence [Recovered/Resolved]
  - Drug interaction [Recovered/Resolved]
  - Drug ineffective [Recovered/Resolved]
